FAERS Safety Report 12121934 (Version 2)
Quarter: 2016Q1

REPORT INFORMATION
  Report Type: Report from Study
  Country: BR (occurrence: BR)
  Receive Date: 20160226
  Receipt Date: 20160317
  Transmission Date: 20160526
  Serious: Yes (Hospitalization, Other)
  Sender: FDA-Public Use
  Company Number: BR-SA-2016SA034874

PATIENT
  Age: 50 Year
  Sex: Female

DRUGS (1)
  1. LANTUS [Suspect]
     Active Substance: INSULIN GLARGINE
     Dosage: 1 APPLICATION IN THE MORNING AND 1 APPLICATION AT NIGHT
     Route: 065
     Dates: start: 2001

REACTIONS (8)
  - Angioplasty [Unknown]
  - Urinary tract infection [Unknown]
  - Haemorrhoids [Unknown]
  - Hypoglycaemia [Unknown]
  - Off label use [Unknown]
  - Infarction [Unknown]
  - Abdominal pain upper [Unknown]
  - Renal disorder [Unknown]

NARRATIVE: CASE EVENT DATE: 2001
